FAERS Safety Report 20252243 (Version 1)
Quarter: 2021Q4

REPORT INFORMATION
  Report Type: Spontaneous
  Country: US (occurrence: US)
  Receive Date: 20211229
  Receipt Date: 20211229
  Transmission Date: 20220303
  Serious: Yes (Other)
  Sender: FDA-Public Use
  Company Number: US-COOPERSURGICAL, INC.-US-2021CPS000815

PATIENT
  Sex: Female
  Weight: 58.957 kg

DRUGS (3)
  1. PARAGARD T 380A [Suspect]
     Active Substance: COPPER
     Indication: Contraception
     Dosage: UNK
     Route: 015
     Dates: start: 20210202
  2. VALACYCLOVIR                       /01269701/ [Concomitant]
     Indication: Product used for unknown indication
     Dosage: UNK
     Route: 065
  3. PRENATAL VITAMINS                  /02014401/ [Concomitant]
     Indication: Product used for unknown indication
     Dosage: UNK
     Route: 065

REACTIONS (6)
  - Device dislocation [Not Recovered/Not Resolved]
  - Uterine perforation [Not Recovered/Not Resolved]
  - Vulvovaginal swelling [Unknown]
  - Vulvovaginal discomfort [Unknown]
  - Discomfort [Unknown]
  - Dyspareunia [Unknown]

NARRATIVE: CASE EVENT DATE: 20210101
